FAERS Safety Report 10652096 (Version 1)
Quarter: 2014Q4

REPORT INFORMATION
  Report Type: Spontaneous
  Country: US (occurrence: None)
  Receive Date: 20141212
  Receipt Date: 20141212
  Transmission Date: 20150529
  Serious: Yes (Life-Threatening)
  Sender: FDA-Public Use
  Company Number: None

PATIENT
  Age: 42 Year
  Sex: Male
  Weight: 208 kg

DRUGS (1)
  1. SUBUTEX [Suspect]
     Active Substance: BUPRENORPHINE HYDROCHLORIDE
     Indication: BIPOLAR DISORDER
     Dosage: ONCE 2MG PILL PER DAY  ONCE DAILY  TAKEN UNDER THE TONGUE
     Dates: start: 20101001, end: 20141201

REACTIONS (11)
  - Dyspnoea [None]
  - Chest pain [None]
  - Feeling abnormal [None]
  - Cardiac flutter [None]
  - Drug hypersensitivity [None]
  - Nausea [None]
  - Heart rate decreased [None]
  - Therapy cessation [None]
  - Presyncope [None]
  - Heart rate increased [None]
  - Palpitations [None]

NARRATIVE: CASE EVENT DATE: 20141201
